FAERS Safety Report 8352208-0 (Version None)
Quarter: 2012Q2

REPORT INFORMATION
  Report Type: 
  Country: None (occurrence: None)
  Receive Date: 20120511
  Receipt Date: 20120508
  Transmission Date: 20120825
  Serious: No
  Sender: FDA-Public Use
  Company Number: US-PFIZER INC-2012112432

PATIENT
  Sex: Female
  Weight: 52.154 kg

DRUGS (2)
  1. PROTONIX [Suspect]
     Dosage: UNK
  2. TIKOSYN [Suspect]
     Indication: ATRIAL FIBRILLATION
     Dosage: 500 UG, 2X/DAY
     Dates: start: 20120501, end: 20120506

REACTIONS (1)
  - ATRIAL FIBRILLATION [None]
